FAERS Safety Report 10281850 (Version 1)
Quarter: 2014Q3

REPORT INFORMATION
  Report Type: Spontaneous
  Country: GR (occurrence: GR)
  Receive Date: 20140707
  Receipt Date: 20140707
  Transmission Date: 20150326
  Serious: Yes (Hospitalization)
  Sender: FDA-Public Use
  Company Number: GR-NOVOPROD-415549

PATIENT
  Age: 80 Year
  Sex: Male
  Weight: 91 kg

DRUGS (4)
  1. PENRAZOL                           /00661201/ [Concomitant]
     Indication: PRODUCT USED FOR UNKNOWN INDICATION
     Dosage: UNKNOWN
     Route: 065
  2. PROTAPHANE [Suspect]
     Active Substance: INSULIN HUMAN
     Indication: TYPE 2 DIABETES MELLITUS
     Dosage: UNKNOWN
     Route: 065
     Dates: start: 2013
  3. OLARTAN [Concomitant]
     Indication: HYPERTENSION
     Dosage: UNKNOWN
     Route: 065
  4. GALVUS [Concomitant]
     Active Substance: VILDAGLIPTIN
     Indication: DIABETES MELLITUS
     Dosage: UNKNOWN
     Route: 065

REACTIONS (2)
  - Acute pulmonary oedema [Recovered/Resolved]
  - Pneumonia [Recovered/Resolved]
